FAERS Safety Report 5982451-7 (Version None)
Quarter: 2008Q4

REPORT INFORMATION
  Report Type: 
  Country: None (occurrence: None)
  Receive Date: 20081208
  Receipt Date: 20081125
  Transmission Date: 20090506
  Serious: Yes (Hospitalization)
  Sender: FDA-Public Use
  Company Number: FR-SANOFI-SYNTHELABO-A02200803533

PATIENT
  Sex: Male

DRUGS (10)
  1. RIVOTRIL [Concomitant]
     Indication: INSOMNIA
     Route: 048
  2. DAFALGAN [Concomitant]
     Indication: PAIN
     Dosage: 3 G
     Route: 048
  3. AMLOD [Concomitant]
     Indication: HYPERTENSION
     Route: 048
  4. PROZAC [Concomitant]
     Indication: DEPRESSION
     Route: 048
     Dates: start: 20080529
  5. AERIUS [Concomitant]
     Indication: DRUG USE FOR UNKNOWN INDICATION
     Route: 048
     Dates: start: 20080529
  6. NEXIUM [Suspect]
     Indication: DRUG USE FOR UNKNOWN INDICATION
     Route: 048
     Dates: start: 20080508
  7. FORLAX [Suspect]
     Indication: DRUG USE FOR UNKNOWN INDICATION
     Route: 048
     Dates: start: 20080513
  8. ZOLPIDEM [Suspect]
     Indication: DRUG USE FOR UNKNOWN INDICATION
     Route: 048
     Dates: start: 20080508
  9. MYOLASTAN [Suspect]
     Indication: DRUG USE FOR UNKNOWN INDICATION
     Dosage: UNK
     Route: 048
     Dates: start: 20080508, end: 20080601
  10. APROVEL [Suspect]
     Indication: HYPERTENSION
     Route: 048
     Dates: start: 20080508

REACTIONS (7)
  - DERMATITIS EXFOLIATIVE [None]
  - ECZEMA [None]
  - NAIL DISORDER [None]
  - OEDEMA PERIPHERAL [None]
  - RASH PAPULAR [None]
  - SKIN EXFOLIATION [None]
  - TOXIC SKIN ERUPTION [None]
